FAERS Safety Report 8799891 (Version 2)
Quarter: 2012Q4

REPORT INFORMATION
  Report Type: 
  Country: AU (occurrence: AU)
  Receive Date: 20120919
  Receipt Date: 20121203
  Transmission Date: 20130627
  Serious: Yes (Other)
  Sender: FDA-Public Use
  Company Number: AU-009507513-1209AUS002487

PATIENT
  Age: 44 Year
  Sex: Male

DRUGS (2)
  1. VICTRELIS 200 MG [Suspect]
     Indication: HEPATITIS C
     Dosage: 2250 mg, qd
     Route: 048
     Dates: start: 20120625, end: 20120816
  2. VICTRELIS 200 MG [Suspect]
     Indication: LIVER DISORDER

REACTIONS (2)
  - Pancytopenia [Not Recovered/Not Resolved]
  - Blood albumin decreased [Not Recovered/Not Resolved]
